FAERS Safety Report 7983233-7 (Version None)
Quarter: 2011Q4

REPORT INFORMATION
  Report Type: 
  Country: None (occurrence: None)
  Receive Date: 20111215
  Receipt Date: 20111206
  Transmission Date: 20120403
  Serious: Yes (Other)
  Sender: FDA-Public Use
  Company Number: GB-ASTRAZENECA-2011SE73939

PATIENT

DRUGS (1)
  1. ATENOLOL [Suspect]
     Route: 065

REACTIONS (1)
  - OVERDOSE [None]
